FAERS Safety Report 19293008 (Version 1)
Quarter: 2021Q2

REPORT INFORMATION
  Report Type: Spontaneous
  Country: US (occurrence: US)
  Receive Date: 20210522
  Receipt Date: 20210522
  Transmission Date: 20210717
  Serious: No
  Sender: FDA-Public Use
  Company Number: None

PATIENT
  Age: 58 Year
  Sex: Female
  Weight: 79.65 kg

DRUGS (1)
  1. XIIDRA [Suspect]
     Active Substance: LIFITEGRAST
     Indication: DRY EYE
     Dosage: ?          QUANTITY:1 10;?
     Route: 047
     Dates: start: 20210510, end: 20210520

REACTIONS (3)
  - Pruritus [None]
  - Eye pain [None]
  - Erythema [None]

NARRATIVE: CASE EVENT DATE: 20210520
